FAERS Safety Report 4422303-7 (Version None)
Quarter: 2004Q3

REPORT INFORMATION
  Report Type: 
  Country: None (occurrence: None)
  Receive Date: 20040810
  Receipt Date: 20040712
  Transmission Date: 20050211
  Serious: Yes (Congenital Anomaly)
  Sender: FDA-Public Use
  Company Number: US-GLAXOSMITHKLINE-A0517834A

PATIENT
  Sex: Female

DRUGS (5)
  1. LAMICTAL [Suspect]
     Indication: BIPOLAR DISORDER
     Dosage: 100MG TWICE PER DAY
     Route: 048
     Dates: start: 19980801
  2. PROZAC [Concomitant]
  3. ADDERALL 20 [Concomitant]
  4. NEXIUM [Concomitant]
  5. REGLAN [Concomitant]

REACTIONS (5)
  - CONGENITAL HYPOTHYROIDISM [None]
  - CONGENITAL PYLORIC STENOSIS [None]
  - DEVELOPMENTAL COORDINATION DISORDER [None]
  - DRUG EXPOSURE DURING PREGNANCY [None]
  - INABILITY TO CRAWL [None]
